FAERS Safety Report 6882827-X (Version None)
Quarter: 2010Q3

REPORT INFORMATION
  Report Type: 
  Country: None (occurrence: None)
  Receive Date: 20100702
  Receipt Date: 20090824
  Transmission Date: 20110219
  Serious: Yes (Other)
  Sender: FDA-Public Use
  Company Number: 2009259448

PATIENT
  Age: 50 Year

DRUGS (1)
  1. ZOLOFT [Suspect]

REACTIONS (1)
  - CATARACT [None]
